FAERS Safety Report 20236481 (Version 1)
Quarter: 2021Q4

REPORT INFORMATION
  Report Type: Spontaneous
  Country: US (occurrence: US)
  Receive Date: 20211228
  Receipt Date: 20211228
  Transmission Date: 20220304
  Serious: No
  Sender: FDA-Public Use
  Company Number: US-CELLTRION INC.-2021US014896

PATIENT

DRUGS (2)
  1. TRUXIMA [Suspect]
     Active Substance: RITUXIMAB-ABBS
     Indication: Thrombocytopenia
     Dosage: 375 MG ONE TIME A WEEK FOR 4 WEEKS
     Dates: start: 20211028
  2. TRUXIMA [Suspect]
     Active Substance: RITUXIMAB-ABBS
     Indication: Systemic lupus erythematosus
     Dosage: 10 MG/ML
     Dates: start: 20211028

REACTIONS (1)
  - Off label use [Unknown]
